FAERS Safety Report 4347018-5 (Version None)
Quarter: 2004Q1

REPORT INFORMATION
  Report Type: 
  Country: None (occurrence: None)
  Receive Date: 20040329
  Receipt Date: 20040213
  Transmission Date: 20041129
  Serious: No
  Sender: FDA-Public Use
  Company Number: USA040259357

PATIENT
  Age: 51 Year
  Sex: Female
  Weight: 84 kg

DRUGS (2)
  1. STRATTERA [Suspect]
     Indication: ATTENTION DEFICIT/HYPERACTIVITY DISORDER
     Dosage: 40 MG/DAY
     Dates: start: 30040206
  2. CELEBREX [Concomitant]

REACTIONS (2)
  - CHILLS [None]
  - TREMOR [None]
